FAERS Safety Report 21056714 (Version 1)
Quarter: 2022Q3

REPORT INFORMATION
  Report Type: Spontaneous
  Country: GB (occurrence: GB)
  Receive Date: 20220708
  Receipt Date: 20220708
  Transmission Date: 20221027
  Serious: No
  Sender: FDA-Public Use
  Company Number: None

PATIENT
  Age: 65 Year
  Sex: Female
  Weight: 96 kg

DRUGS (4)
  1. IBUPROFEN [Suspect]
     Active Substance: IBUPROFEN
     Indication: Adverse drug reaction
     Dosage: 400 MILLIGRAM, 4 TIMES A DAY
     Route: 065
     Dates: start: 20220314, end: 20220523
  2. ACETAMINOPHEN [Concomitant]
     Active Substance: ACETAMINOPHEN
     Indication: Adverse drug reaction
     Dosage: UNK
     Route: 065
     Dates: start: 20220311
  3. TRAMADOL [Concomitant]
     Active Substance: TRAMADOL
     Indication: Rib fracture
     Dosage: UNK
     Route: 065
     Dates: start: 20220401, end: 20220410
  4. ACETAMINOPHEN\CODEINE PHOSPHATE [Concomitant]
     Active Substance: ACETAMINOPHEN\CODEINE PHOSPHATE
     Indication: Rib fracture
     Dosage: UNK
     Route: 065
     Dates: start: 20220404

REACTIONS (2)
  - Blood pressure increased [Not Recovered/Not Resolved]
  - Palpitations [Not Recovered/Not Resolved]

NARRATIVE: CASE EVENT DATE: 20220501
